FAERS Safety Report 10131318 (Version 1)
Quarter: 2014Q2

REPORT INFORMATION
  Report Type: Spontaneous
  Country: US (occurrence: US)
  Receive Date: 20140428
  Receipt Date: 20140428
  Transmission Date: 20141212
  Serious: No
  Sender: FDA-Public Use
  Company Number: US-GLAXOSMITHKLINE-A1061208A

PATIENT
  Age: 42 Year
  Sex: Male

DRUGS (9)
  1. ZOFRAN [Suspect]
     Indication: NAUSEA
     Dosage: 4MG AS REQUIRED
     Dates: start: 20131227
  2. HUMIRA [Suspect]
     Indication: CROHN^S DISEASE
     Dosage: 40MG CYCLIC
     Dates: start: 201308
  3. IRON [Concomitant]
  4. POTASSIUM SULPHATE [Concomitant]
  5. CYMBALTA [Concomitant]
  6. PROTONIX [Concomitant]
  7. FOLIC ACID [Concomitant]
  8. LOPRESSOR [Concomitant]
  9. IMURAN [Concomitant]

REACTIONS (4)
  - Yellow skin [Unknown]
  - Feeling abnormal [Unknown]
  - Asthenia [Unknown]
  - Drug ineffective [Unknown]
